FAERS Safety Report 18782356 (Version 3)
Quarter: 2021Q1

REPORT INFORMATION
  Report Type: Spontaneous
  Country: US (occurrence: US)
  Receive Date: 20210125
  Receipt Date: 20210331
  Transmission Date: 20210419
  Serious: Yes (Other)
  Sender: FDA-Public Use
  Company Number: NVSC2021US012357

PATIENT

DRUGS (2)
  1. LUTATHERA [Suspect]
     Active Substance: LUTETIUM OXODOTREOTIDE LU-177
     Dosage: UNK (CYCLE 4)
     Route: 042
     Dates: start: 20201022, end: 20201022
  2. LUTATHERA [Suspect]
     Active Substance: LUTETIUM OXODOTREOTIDE LU-177
     Indication: MENINGIOMA
     Dosage: 7400 MBQ, (EVERY 8 WEEKS FOR A TOTAL OF 4 D)
     Route: 042
     Dates: start: 20200423

REACTIONS (2)
  - Blindness [Not Recovered/Not Resolved]
  - Product use in unapproved indication [Unknown]

NARRATIVE: CASE EVENT DATE: 20201228
